FAERS Safety Report 7516460-3 (Version None)
Quarter: 2011Q2

REPORT INFORMATION
  Report Type: 
  Country: None (occurrence: None)
  Receive Date: 20110601
  Receipt Date: 20110517
  Transmission Date: 20111010
  Serious: Yes (Death, Hospitalization)
  Sender: FDA-Public Use
  Company Number: A0787752A

PATIENT
  Age: 68 Year
  Sex: Female
  Weight: 104.5 kg

DRUGS (1)
  1. AVANDIA [Suspect]
     Indication: DIABETES MELLITUS
     Dosage: 4MG PER DAY
     Route: 048
     Dates: start: 20010101, end: 20080701

REACTIONS (10)
  - SEPSIS [None]
  - METABOLIC ACIDOSIS [None]
  - HEPATIC STEATOSIS [None]
  - RESPIRATORY FAILURE [None]
  - HEART DISEASE CONGENITAL [None]
  - RENAL FAILURE ACUTE [None]
  - PULMONARY OEDEMA [None]
  - LUNG DISORDER [None]
  - CARDIAC FAILURE [None]
  - HYPERKALAEMIA [None]
